FAERS Safety Report 17448435 (Version 1)
Quarter: 2020Q1

REPORT INFORMATION
  Report Type: Spontaneous
  Country: PL (occurrence: PL)
  Receive Date: 20200223
  Receipt Date: 20200223
  Transmission Date: 20200409
  Serious: Yes (Hospitalization)
  Sender: FDA-Public Use
  Company Number: PL-ABBVIE-20K-129-3286768-00

PATIENT
  Age: 49 Year
  Sex: Male

DRUGS (1)
  1. MAVIRET [Suspect]
     Active Substance: GLECAPREVIR\PIBRENTASVIR
     Indication: HEPATITIS C
     Route: 048
     Dates: start: 20190603, end: 20190711

REACTIONS (7)
  - Pyrexia [Recovered/Resolved]
  - Ascites [Recovered/Resolved]
  - Altered state of consciousness [Recovered/Resolved]
  - Thrombocytopenia [Unknown]
  - Pneumonia [Unknown]
  - Yellow skin [Recovered/Resolved]
  - Peripheral swelling [Recovered/Resolved]

NARRATIVE: CASE EVENT DATE: 20190708
